FAERS Safety Report 23346014 (Version 1)
Quarter: 2023Q4

REPORT INFORMATION
  Report Type: Spontaneous
  Country: US (occurrence: US)
  Receive Date: 20231228
  Receipt Date: 20231228
  Transmission Date: 20240110
  Serious: No
  Sender: FDA-Public Use
  Company Number: US-ABBVIE-5562516

PATIENT
  Sex: Male

DRUGS (1)
  1. LINZESS [Suspect]
     Active Substance: LINACLOTIDE
     Indication: Product used for unknown indication
     Route: 048

REACTIONS (5)
  - Gastrointestinal disorder [Unknown]
  - Mental disorder [Not Recovered/Not Resolved]
  - Drug ineffective [Unknown]
  - Diarrhoea [Recovering/Resolving]
  - Abdominal distension [Not Recovered/Not Resolved]
